FAERS Safety Report 17705609 (Version 2)
Quarter: 2020Q2

REPORT INFORMATION
  Report Type: Spontaneous
  Country: US (occurrence: US)
  Receive Date: 20200424
  Receipt Date: 20200427
  Transmission Date: 20200714
  Serious: Yes (Other)
  Sender: FDA-Public Use
  Company Number: US-SA-2020SA105547

PATIENT
  Age: 57 Year
  Sex: Female

DRUGS (1)
  1. ARAVA [Suspect]
     Active Substance: LEFLUNOMIDE
     Indication: POLYARTHRITIS
     Dosage: UNK
     Route: 065

REACTIONS (4)
  - Stevens-Johnson syndrome [Unknown]
  - Toxic epidermal necrolysis [Unknown]
  - Malaise [Unknown]
  - Amnesia [Unknown]

NARRATIVE: CASE EVENT DATE: 20190610
